FAERS Safety Report 17520282 (Version 5)
Quarter: 2020Q2

REPORT INFORMATION
  Report Type: Report from Study
  Country: TR (occurrence: TR)
  Receive Date: 20200309
  Receipt Date: 20200505
  Transmission Date: 20200713
  Serious: Yes (Death, Hospitalization)
  Sender: FDA-Public Use
  Company Number: TR-EISAI MEDICAL RESEARCH-EC-2020-071484

PATIENT
  Age: 70 Year
  Sex: Male
  Weight: 62 kg

DRUGS (15)
  1. DEKORT [Concomitant]
     Active Substance: DEXAMETHASONE
     Dates: start: 20200220, end: 20200220
  2. LASIX [Concomitant]
     Active Substance: FUROSEMIDE
     Dates: start: 20200220, end: 20200220
  3. DODEX [Concomitant]
     Active Substance: CYANOCOBALAMIN
     Dates: start: 20200220, end: 20200220
  4. ULCURAN [Concomitant]
     Active Substance: RANITIDINE HYDROCHLORIDE
     Dates: start: 20200220, end: 20200220
  5. KORDEXA [Concomitant]
     Active Substance: DEXAMETHASONE
     Dates: start: 20200221, end: 20200222
  6. LENVATINIB [Suspect]
     Active Substance: LENVATINIB
     Indication: NON-SMALL CELL LUNG CANCER METASTATIC
     Route: 048
     Dates: start: 20200220, end: 20200303
  7. PEMETREXED. [Suspect]
     Active Substance: PEMETREXED
     Indication: NON-SMALL CELL LUNG CANCER METASTATIC
     Route: 041
     Dates: start: 20200220, end: 20200220
  8. NEXIUM [Concomitant]
     Active Substance: ESOMEPRAZOLE MAGNESIUM
     Dates: start: 20200221, end: 20200222
  9. NOVOMIX [Concomitant]
     Active Substance: INSULIN ASPART
     Dates: start: 20150101
  10. CISPLATIN. [Suspect]
     Active Substance: CISPLATIN
     Indication: NON-SMALL CELL LUNG CANCER METASTATIC
     Route: 041
     Dates: start: 20200220, end: 20200220
  11. EMEND [Concomitant]
     Active Substance: APREPITANT
     Dates: start: 20200221, end: 20200222
  12. EMEND [Concomitant]
     Active Substance: APREPITANT
     Dates: start: 20200220, end: 20200220
  13. PALONOSETRON HYDROCHLORIDE. [Concomitant]
     Active Substance: PALONOSETRON HYDROCHLORIDE
     Dates: start: 20200220, end: 20200220
  14. DIAFORMIN [Concomitant]
     Active Substance: METFORMIN HYDROCHLORIDE
     Dates: start: 201001
  15. PEMBROLIZUMAB. [Suspect]
     Active Substance: PEMBROLIZUMAB
     Indication: NON-SMALL CELL LUNG CANCER METASTATIC
     Route: 041
     Dates: start: 20200220, end: 20200220

REACTIONS (1)
  - Febrile neutropenia [Fatal]

NARRATIVE: CASE EVENT DATE: 20200303
